FAERS Safety Report 14056749 (Version 1)
Quarter: 2017Q4

REPORT INFORMATION
  Report Type: Spontaneous
  Country: TR (occurrence: TR)
  Receive Date: 20171006
  Receipt Date: 20171006
  Transmission Date: 20180321
  Serious: Yes (Death)
  Sender: FDA-Public Use
  Company Number: TR-PFIZER INC-13650

PATIENT
  Age: 36 Year
  Sex: Female

DRUGS (6)
  1. IDARUBICIN [Suspect]
     Active Substance: IDARUBICIN
     Indication: T-CELL LYMPHOMA REFRACTORY
     Dosage: 10 MG/M2, 10MG/ M? ON DAYS 1-2
     Route: 042
  2. IFOSFAMIDE. [Suspect]
     Active Substance: IFOSFAMIDE
     Indication: T-CELL LYMPHOMA REFRACTORY
     Dosage: 1000 MG/M2, PLANNED FOR 1000M G/M? ON DAYS 1-5
     Route: 042
  3. PRIMIDONE. [Concomitant]
     Active Substance: PRIMIDONE
     Indication: SEIZURE
     Dosage: UNK
     Route: 065
  4. METHOTREXATE SODIUM. [Suspect]
     Active Substance: METHOTREXATE SODIUM
     Indication: T-CELL LYMPHOMA REFRACTORY
     Dosage: UNK
     Route: 037
  5. ETOPOSIDE. [Suspect]
     Active Substance: ETOPOSIDE
     Dosage: 150 MG/M2, PLANNED FOR 150MG /M? ON DAYS 1-5
     Route: 042
  6. MESNA. [Concomitant]
     Active Substance: MESNA
     Dosage: 600 MG/M2, PLANNED FOR 600MG /M? DAILY FOR 5 DAYS
     Route: 065

REACTIONS (1)
  - Leukoencephalopathy [Fatal]
